FAERS Safety Report 21135049 (Version 1)
Quarter: 2022Q3

REPORT INFORMATION
  Report Type: Spontaneous
  Country: US (occurrence: US)
  Receive Date: 20220727
  Receipt Date: 20220727
  Transmission Date: 20221026
  Serious: No
  Sender: FDA-Public Use
  Company Number: US-TEVA-2022-US-2056476

PATIENT
  Sex: Female

DRUGS (2)
  1. TRAZODONE HYDROCHLORIDE [Suspect]
     Active Substance: TRAZODONE HYDROCHLORIDE
     Indication: Insomnia
     Dosage: 50 MILLIGRAM DAILY;
     Route: 065
  2. TRAZODONE HYDROCHLORIDE [Suspect]
     Active Substance: TRAZODONE HYDROCHLORIDE
     Indication: Sleep disorder
     Dosage: ()QUARTER TO ELEVEN LAST NIGHT) (TOOK ANOTHER HALF AT 3 AM ON 14-JUL-2022)
     Route: 065
     Dates: start: 20220713

REACTIONS (6)
  - Product use in unapproved indication [Unknown]
  - Product dose omission issue [Unknown]
  - Expired product administered [Unknown]
  - Drug ineffective [Recovered/Resolved with Sequelae]
  - Wrong technique in product usage process [Unknown]
  - Anxiety [Unknown]

NARRATIVE: CASE EVENT DATE: 20220713
